FAERS Safety Report 9729820 (Version 2)
Quarter: 2013Q4

REPORT INFORMATION
  Report Type: Spontaneous
  Country: US (occurrence: US)
  Receive Date: 20131204
  Receipt Date: 20131204
  Transmission Date: 20140711
  Serious: No
  Sender: FDA-Public Use
  Company Number: US-GILEAD-2009-0021770

PATIENT
  Sex: Female
  Weight: 90.72 kg

DRUGS (10)
  1. LETAIRIS [Suspect]
     Indication: PULMONARY ARTERIAL HYPERTENSION
     Route: 048
     Dates: start: 20090417
  2. METOPROLOL [Concomitant]
  3. COUMADIN [Concomitant]
  4. ASPIRIN [Concomitant]
  5. ALBUTEROL [Concomitant]
  6. ZANTAC [Concomitant]
  7. ALLOPURINOL [Concomitant]
  8. RENAL CAPS [Concomitant]
  9. DOCUSATE SODIUM [Concomitant]
  10. OXYGEN [Concomitant]

REACTIONS (1)
  - Blood pressure decreased [Unknown]
